FAERS Safety Report 5787121-6 (Version None)
Quarter: 2008Q2

REPORT INFORMATION
  Report Type: 
  Country: None (occurrence: None)
  Receive Date: 20080623
  Receipt Date: 20080623
  Transmission Date: 20081010
  Serious: Yes (Disabling)
  Sender: FDA-Public Use
  Company Number: None

PATIENT
  Age: 53 Year
  Sex: Male
  Weight: 65.318 kg

DRUGS (2)
  1. ZOCOR [Suspect]
     Indication: HYPERCHOLESTEROLAEMIA
     Dosage: 20 MG ONCE DAILY PO
     Route: 048
     Dates: start: 20040515, end: 20050616
  2. VYTORIN [Suspect]
     Indication: HYPERCHOLESTEROLAEMIA
     Dosage: 10MG/10MG ONCE DAILY PO
     Route: 048
     Dates: start: 20050617, end: 20080402

REACTIONS (1)
  - TENDON RUPTURE [None]
